FAERS Safety Report 8926075 (Version 1)
Quarter: 2012Q4

REPORT INFORMATION
  Report Type: 
  Country: GB (occurrence: GB)
  Receive Date: 20121126
  Receipt Date: 20121126
  Transmission Date: 20130627
  Serious: Yes (Other)
  Sender: FDA-Public Use
  Company Number: GB-JNJFOC-20121110349

PATIENT
  Age: 79 Year
  Sex: Male
  Weight: 84 kg

DRUGS (13)
  1. XARELTO [Suspect]
     Indication: THROMBOSIS PROPHYLAXIS
     Route: 048
     Dates: start: 20121017, end: 20121024
  2. XARELTO [Suspect]
     Indication: KNEE ARTHROPLASTY
     Route: 048
     Dates: start: 20121017, end: 20121024
  3. PARACETAMOL [Concomitant]
     Route: 065
  4. SIMVASTATIN [Concomitant]
     Route: 065
  5. CLOPIDOGREL [Concomitant]
     Route: 065
  6. TAMSULOSIN [Concomitant]
     Route: 065
  7. ISOSORBIDE MONONITRATE [Concomitant]
     Route: 065
  8. OMEPRAZOLE [Concomitant]
     Route: 065
  9. RAMIPRIL [Concomitant]
     Route: 065
  10. CITALOPRAM [Concomitant]
     Route: 065
  11. BISOPROLOL [Concomitant]
     Route: 065
  12. AMLODIPINE [Concomitant]
     Route: 065
  13. FYBOGEL [Concomitant]
     Route: 065

REACTIONS (2)
  - Malaise [Recovering/Resolving]
  - Bundle branch block right [Recovering/Resolving]
